FAERS Safety Report 5979934-2 (Version None)
Quarter: 2008Q4

REPORT INFORMATION
  Report Type: 
  Country: None (occurrence: None)
  Receive Date: 20081205
  Receipt Date: 20081201
  Transmission Date: 20090506
  Serious: Yes (Death, Other)
  Sender: FDA-Public Use
  Company Number: NL-BRISTOL-MYERS SQUIBB COMPANY-14425185

PATIENT
  Age: 57 Year
  Sex: Female

DRUGS (3)
  1. HEPARIN SODIUM [Suspect]
     Indication: ACUTE CORONARY SYNDROME
  2. CARBASALATE CALCIUM [Suspect]
     Indication: ACUTE CORONARY SYNDROME
  3. METOPROLOL TARTRATE [Suspect]
     Indication: ACUTE CORONARY SYNDROME

REACTIONS (2)
  - SUBARACHNOID HAEMORRHAGE [None]
  - VENTRICULAR FIBRILLATION [None]
